FAERS Safety Report 9248092 (Version 1)
Quarter: 2013Q1

REPORT INFORMATION
  Report Type: Spontaneous
  Country: US (occurrence: None)
  Receive Date: 20130305
  Receipt Date: 20130305
  Transmission Date: 20140127
  Serious: Yes (Other)
  Sender: FDA-Public Use
  Company Number: 163-21880-12101365

PATIENT
  Age: 73 Year
  Sex: Female

DRUGS (2)
  1. REVLIMID [Suspect]
     Indication: PLASMA CELL MYELOMA
     Dosage: 21 IN 21 D
     Route: 048
     Dates: start: 20080805
  2. VITAMIN D (ERGOCALCIFEROL) [Suspect]

REACTIONS (9)
  - Hypotension [None]
  - Oedema peripheral [None]
  - Burning sensation [None]
  - Plasma cell myeloma [None]
  - Blood count abnormal [None]
  - Fatigue [None]
  - Dizziness [None]
  - Neuropathy peripheral [None]
  - Depression [None]
